FAERS Safety Report 4296445-3 (Version None)
Quarter: 2004Q1

REPORT INFORMATION
  Report Type: 
  Country: None (occurrence: None)
  Receive Date: 20040212
  Receipt Date: 20040206
  Transmission Date: 20041129
  Serious: Yes (Hospitalization, Other)
  Sender: FDA-Public Use
  Company Number: TPG2004A00022

PATIENT
  Age: 77 Year
  Sex: Male

DRUGS (3)
  1. TRENANTONE (LEUPROLIDE ACETATE) [Suspect]
     Indication: PROSTATE CANCER
     Dosage: 11.25 (11.25 MG, 1 IN 3 M)
     Route: 058
     Dates: start: 20031009
  2. NITRENDIPINE (NITRENDIPINE) [Concomitant]
  3. ALLOPURINOL [Concomitant]

REACTIONS (1)
  - ACUTE FEBRILE NEUTROPHILIC DERMATOSIS [None]
